FAERS Safety Report 8905558 (Version 1)
Quarter: 2012Q4

REPORT INFORMATION
  Report Type: 
  Country: CA (occurrence: CA)
  Receive Date: 20121109
  Receipt Date: 20121109
  Transmission Date: 20130627
  Serious: Yes (Other)
  Sender: FDA-Public Use
  Company Number: PHHY2012CA102728

PATIENT
  Age: 28 Year

DRUGS (1)
  1. GILENYA [Suspect]
     Indication: RELAPSING-REMITTING MULTIPLE SCLEROSIS
     Dosage: 0.5 mg, QD
     Route: 048
     Dates: start: 20120213

REACTIONS (8)
  - Vertigo [Recovering/Resolving]
  - Nausea [Recovering/Resolving]
  - Deja vu [Recovering/Resolving]
  - Derealisation [Recovering/Resolving]
  - Agitation [Recovering/Resolving]
  - Lymphocyte count decreased [Recovering/Resolving]
  - Neutrophil count decreased [Unknown]
  - Anxiety [Recovering/Resolving]
